FAERS Safety Report 4432170-3 (Version None)
Quarter: 2004Q3

REPORT INFORMATION
  Report Type: 
  Country: None (occurrence: None)
  Receive Date: 20040818
  Receipt Date: 20040805
  Transmission Date: 20050211
  Serious: Yes (Death, Other)
  Sender: FDA-Public Use
  Company Number: 2004035410

PATIENT
  Age: 59 Year
  Sex: Male

DRUGS (8)
  1. ACCUPRIL [Suspect]
     Indication: ILL-DEFINED DISORDER
     Dosage: ORAL
     Route: 048
  2. GLIPIZIDE [Suspect]
     Indication: ILL-DEFINED DISORDER
     Dosage: ORAL
  3. CELECOXIB (CELECOXIB) [Suspect]
     Indication: ILL-DEFINED DISORDER
     Dosage: ORAL
     Route: 048
  4. CODEINE PHOSPHATE AND ACETAMINOPHEN [Suspect]
     Indication: ILL-DEFINED DISORDER
     Dosage: ORAL
     Route: 048
  5. ZOLPIEM TARTRATE (ZOLPIDEM TARTRATE) [Suspect]
     Indication: ILL-DEFINED DISORDER
     Dosage: ORAL
     Route: 048
  6. PANTOPRAZOLE (PANTOPRAZOLE) [Suspect]
     Indication: ILL-DEFINED DISORDER
     Dosage: ORAL
     Route: 048
  7. THIAMINE MONONITRATE (THIAMINE MONONITRATE) [Concomitant]
  8. ALL OTHER THERAPEUTIC PRODUCTS [Concomitant]

REACTIONS (10)
  - ATHEROSCLEROSIS [None]
  - CARDIAC DISORDER [None]
  - COMPLETED SUICIDE [None]
  - EMPHYSEMA [None]
  - GLOMERULONEPHRITIS ACUTE [None]
  - HEPATIC CONGESTION [None]
  - INTENTIONAL MISUSE [None]
  - PULMONARY CONGESTION [None]
  - SCAR [None]
  - TOXICOLOGIC TEST ABNORMAL [None]
